FAERS Safety Report 15456666 (Version 1)
Quarter: 2018Q3

REPORT INFORMATION
  Report Type: Spontaneous
  Country: US (occurrence: US)
  Receive Date: 20180928
  Receipt Date: 20180928
  Transmission Date: 20181010
  Serious: Yes (Other)
  Sender: FDA-Public Use
  Company Number: None

PATIENT
  Age: 78 Year
  Sex: Male
  Weight: 79.2 kg

DRUGS (9)
  1. METOPROLOL. [Concomitant]
     Active Substance: METOPROLOL
  2. PANTOPRAZOLE [Concomitant]
     Active Substance: PANTOPRAZOLE
  3. CAPECITABINE. [Suspect]
     Active Substance: CAPECITABINE
     Indication: GASTRIC CANCER
     Route: 048
     Dates: start: 20180712, end: 20180928
  4. AMIODARONE [Concomitant]
     Active Substance: AMIODARONE
  5. ASCORBIC ACID. [Concomitant]
     Active Substance: ASCORBIC ACID
  6. PRAVASTATIN. [Concomitant]
     Active Substance: PRAVASTATIN
  7. IRON [Concomitant]
     Active Substance: IRON
  8. TAMSULOSIN [Concomitant]
     Active Substance: TAMSULOSIN
  9. MIDODRINE [Concomitant]
     Active Substance: MIDODRINE

REACTIONS (1)
  - Disease progression [None]

NARRATIVE: CASE EVENT DATE: 20180928
